FAERS Safety Report 9222788 (Version 1)
Quarter: 2013Q1

REPORT INFORMATION
  Report Type: Spontaneous
  Country: US (occurrence: None)
  Receive Date: 20120914
  Receipt Date: 20120914
  Transmission Date: 20140127
  Serious: Yes (Other)
  Sender: FDA-Public Use
  Company Number: JPI-P-022143

PATIENT
  Age: 66 Year
  Sex: Female
  Weight: 36.29 kg

DRUGS (6)
  1. XYREM (500 MILLIGRAM/MILLITERS, SOLUTION) (SODIUM OXYBATE) [Suspect]
     Indication: CATAPLEXY
     Route: 048
     Dates: start: 20120327
  2. MODAFINIL [Concomitant]
  3. LOVASTATIN [Concomitant]
  4. DONEPEZIL [Concomitant]
  5. LORATADINE [Concomitant]
  6. MELOXICAM [Concomitant]

REACTIONS (5)
  - Weight decreased [None]
  - Swelling [None]
  - Vision blurred [None]
  - Paraesthesia [None]
  - Memory impairment [None]
